FAERS Safety Report 5798374-2 (Version None)
Quarter: 2008Q3

REPORT INFORMATION
  Report Type: 
  Country: None (occurrence: None)
  Receive Date: 20080702
  Receipt Date: 20080102
  Transmission Date: 20090109
  Serious: No
  Sender: FDA-Public Use
  Company Number: A0701012A

PATIENT
  Age: 65 Year
  Sex: Male

DRUGS (2)
  1. PARNATE [Suspect]
     Dosage: 10MG SEE DOSAGE TEXT
     Route: 048
  2. NO CONCURRENT MEDICATION [Concomitant]

REACTIONS (3)
  - ARTHRALGIA [None]
  - GASTROOESOPHAGEAL REFLUX DISEASE [None]
  - MYALGIA [None]
